FAERS Safety Report 5454391-3 (Version None)
Quarter: 2007Q3

REPORT INFORMATION
  Report Type: 
  Country: None (occurrence: None)
  Receive Date: 20070917
  Receipt Date: 20060705
  Transmission Date: 20080115
  Serious: No
  Sender: FDA-Public Use
  Company Number: US-ASTRAZENECA-2006UW13876

PATIENT
  Age: 51 Year
  Sex: Female
  Weight: 90.7 kg

DRUGS (6)
  1. SEROQUEL [Suspect]
     Indication: DEPRESSION
     Dosage: BEGAN SEROQUEL STARTER PACK
     Route: 048
     Dates: start: 20060629, end: 20060703
  2. SEROQUEL [Suspect]
     Dosage: STARTED ON SEROQUEL 200 MG AFTER TAKING SEROQUEL STARTER PACK
     Route: 048
     Dates: start: 20060704
  3. HYDROCHLOROTHIAZIDE [Concomitant]
  4. POTASSIUM CHLORIDE [Concomitant]
  5. LOTREL [Concomitant]
  6. CYMBALTA [Concomitant]

REACTIONS (4)
  - FATIGUE [None]
  - GAIT DISTURBANCE [None]
  - POISONING [None]
  - SOMNOLENCE [None]
